FAERS Safety Report 25408980 (Version 1)
Quarter: 2025Q2

REPORT INFORMATION
  Report Type: Spontaneous
  Country: PT (occurrence: PT)
  Receive Date: 20250607
  Receipt Date: 20250607
  Transmission Date: 20250716
  Serious: Yes (Other)
  Sender: AUROBINDO
  Company Number: PT-AUROBINDO-AUR-APL-2025-029098

PATIENT
  Age: 58 Year
  Sex: Female

DRUGS (2)
  1. METRONIDAZOLE [Suspect]
     Active Substance: METRONIDAZOLE
     Indication: Pseudomembranous colitis
     Route: 065
  2. FIDAXOMICIN [Suspect]
     Active Substance: FIDAXOMICIN
     Indication: Pseudomembranous colitis
     Route: 065

REACTIONS (1)
  - Drug ineffective [Unknown]
